FAERS Safety Report 19389534 (Version 2)
Quarter: 2021Q2

REPORT INFORMATION
  Report Type: Spontaneous
  Country: US (occurrence: US)
  Receive Date: 20210608
  Receipt Date: 20210615
  Transmission Date: 20210717
  Serious: No
  Sender: FDA-Public Use
  Company Number: US-PFIZER INC-2021276384

PATIENT
  Age: 62 Year
  Sex: Female
  Weight: 64.4 kg

DRUGS (2)
  1. STIVARGA [Concomitant]
     Active Substance: REGORAFENIB
     Dosage: UNK
  2. SUTENT [Suspect]
     Active Substance: SUNITINIB MALATE
     Indication: GASTROINTESTINAL STROMAL TUMOUR
     Dosage: 50 MG, CYCLIC (DAILY 4 WEEKS REST 2 WEEKS)
     Route: 048
     Dates: start: 20210226

REACTIONS (4)
  - Hunger [Unknown]
  - Feeding disorder [Unknown]
  - Abdominal pain upper [Unknown]
  - Joint swelling [Unknown]

NARRATIVE: CASE EVENT DATE: 2021
